FAERS Safety Report 7519750-3 (Version None)
Quarter: 2011Q2

REPORT INFORMATION
  Report Type: 
  Country: None (occurrence: None)
  Receive Date: 20110524
  Receipt Date: 20110509
  Transmission Date: 20111010
  Serious: Yes (Death, Other)
  Sender: FDA-Public Use
  Company Number: FK201100948

PATIENT
  Age: 67 Year
  Sex: Female

DRUGS (1)
  1. HEPARIN SODIUM [Suspect]
     Indication: THROMBOSIS

REACTIONS (6)
  - CARDIOGENIC SHOCK [None]
  - HEPARIN-INDUCED THROMBOCYTOPENIA [None]
  - ISCHAEMIC STROKE [None]
  - ACUTE MYOCARDIAL INFARCTION [None]
  - RENAL FAILURE ACUTE [None]
  - CEREBRAL HAEMORRHAGE [None]
